FAERS Safety Report 7278808-7 (Version None)
Quarter: 2011Q1

REPORT INFORMATION
  Report Type: 
  Country: None (occurrence: None)
  Receive Date: 20110207
  Receipt Date: 20110128
  Transmission Date: 20110831
  Serious: Yes (Other)
  Sender: FDA-Public Use
  Company Number: GB-TEVA-265924ISR

PATIENT
  Age: 51 Year

DRUGS (3)
  1. MIRTAZAPINE [Suspect]
     Indication: DEPRESSION
  2. DOXAZOSIN [Suspect]
  3. METFORMIN HCL [Suspect]

REACTIONS (1)
  - PANCREATITIS ACUTE [None]
